FAERS Safety Report 6986451-X (Version None)
Quarter: 2010Q3

REPORT INFORMATION
  Report Type: 
  Country: None (occurrence: None)
  Receive Date: 20100915
  Receipt Date: 20090629
  Transmission Date: 20110219
  Serious: No
  Sender: FDA-Public Use
  Company Number: US-WYE-H09953709

PATIENT
  Sex: Female

DRUGS (1)
  1. PRISTIQ [Suspect]
     Indication: ANXIETY
     Route: 048
     Dates: start: 20090621, end: 20090628

REACTIONS (4)
  - COLD SWEAT [None]
  - CONSTIPATION [None]
  - HYPERHIDROSIS [None]
  - INSOMNIA [None]
